FAERS Safety Report 24184842 (Version 3)
Quarter: 2024Q4

REPORT INFORMATION
  Report Type: Spontaneous
  Country: US (occurrence: US)
  Receive Date: 20240807
  Receipt Date: 20241010
  Transmission Date: 20250115
  Serious: No
  Sender: PFIZER
  Company Number: US-PFIZER INC-202400108041

PATIENT
  Age: 80 Year
  Sex: Female

DRUGS (2)
  1. NURTEC ODT [Suspect]
     Active Substance: RIMEGEPANT SULFATE
     Indication: Migraine
     Dosage: 75 MG, AS NEEDED (DISSOLVE 1 TABLET ON TONGUE ONCE DAILY AS NEEDED, MAX 1 TAB PER 24HRS)
     Route: 048
  2. NURTEC ODT [Suspect]
     Active Substance: RIMEGEPANT SULFATE
     Dosage: 75 MG, 2X/DAY(ONE IN THE MORNING, ONE AT NIGHT)

REACTIONS (4)
  - Abdominal discomfort [Unknown]
  - Urinary tract infection [Unknown]
  - Abdominal pain upper [Unknown]
  - Product use issue [Unknown]

NARRATIVE: CASE EVENT DATE: 20240801
